FAERS Safety Report 8954483 (Version 1)
Quarter: 2012Q4

REPORT INFORMATION
  Report Type: 
  Country: US (occurrence: US)
  Receive Date: 20121207
  Receipt Date: 20121207
  Transmission Date: 20130627
  Serious: Yes (Hospitalization)
  Sender: FDA-Public Use
  Company Number: US-AMGEN-USASP2012076705

PATIENT
  Age: 61 Year
  Sex: Male

DRUGS (4)
  1. ENBREL [Suspect]
     Indication: ANKYLOSING SPONDYLITIS
     Dosage: 50 mug, qwk
     Route: 058
  2. ACETAMINOPHEN [Concomitant]
     Dosage: UNK
  3. METOPROLOL [Concomitant]
     Dosage: UNK
  4. OMEPRAZOL                          /00661201/ [Concomitant]
     Dosage: UNK

REACTIONS (6)
  - Mental status changes [Recovered/Resolved]
  - Cerebral ischaemia [Recovered/Resolved]
  - Encephalitis [Recovered/Resolved]
  - CNS ventriculitis [Recovered/Resolved]
  - Meningitis pneumococcal [Recovered/Resolved]
  - Brain abscess [Recovered/Resolved]
